FAERS Safety Report 10503514 (Version 6)
Quarter: 2015Q3

REPORT INFORMATION
  Report Type: Report from Study
  Country: GB (occurrence: GB)
  Receive Date: 20141008
  Receipt Date: 20150918
  Transmission Date: 20151125
  Serious: Yes (Other)
  Sender: FDA-Public Use
  Company Number: GB-ALEXION PHARMACEUTICALS INC-A201403405

PATIENT

DRUGS (5)
  1. SOLIRIS [Suspect]
     Active Substance: ECULIZUMAB
     Dosage: 1200 MG, Q2W
     Route: 042
     Dates: start: 20131128
  2. IBUPROFEN. [Suspect]
     Active Substance: IBUPROFEN
     Indication: ARTHRALGIA
     Route: 065
  3. SOLIRIS [Suspect]
     Active Substance: ECULIZUMAB
     Indication: PAROXYSMAL NOCTURNAL HAEMOGLOBINURIA
     Dosage: 1500 MG, Q2W
     Route: 042
     Dates: start: 20131128
  4. SOLIRIS [Suspect]
     Active Substance: ECULIZUMAB
     Dosage: 1200 MG, Q2W
     Route: 042
  5. SOLIRIS [Suspect]
     Active Substance: ECULIZUMAB
     Dosage: 1200 MG, Q2W
     Route: 042
     Dates: start: 20131114

REACTIONS (15)
  - Sweat gland infection [Not Recovered/Not Resolved]
  - Urine odour abnormal [Not Recovered/Not Resolved]
  - Arthralgia [Not Recovered/Not Resolved]
  - Incorrect dose administered [Recovered/Resolved]
  - Dysuria [Not Recovered/Not Resolved]
  - Arrhythmia [Unknown]
  - Wheezing [Unknown]
  - Urine abnormality [Not Recovered/Not Resolved]
  - Headache [Not Recovered/Not Resolved]
  - Fatigue [Not Recovered/Not Resolved]
  - Stress [Unknown]
  - Pain in extremity [Not Recovered/Not Resolved]
  - Pain [Not Recovered/Not Resolved]
  - Abdominal pain [Not Recovered/Not Resolved]
  - Pyrexia [Unknown]

NARRATIVE: CASE EVENT DATE: 20131128
